FAERS Safety Report 8901007 (Version 2)
Quarter: 2012Q4

REPORT INFORMATION
  Report Type: 
  Country: NL (occurrence: NL)
  Receive Date: 20121109
  Receipt Date: 20121116
  Transmission Date: 20130627
  Serious: Yes (Other)
  Sender: FDA-Public Use
  Company Number: NL-PFIZER INC-2012278396

PATIENT
  Age: 76 Year
  Sex: Female

DRUGS (3)
  1. ATORVASTATIN PFIZER [Suspect]
     Dosage: 40 mg, 1x/day
     Route: 048
     Dates: start: 201210
  2. BUMETANIDE [Concomitant]
     Dosage: UNK
  3. INSULIN [Concomitant]
     Dosage: UNK

REACTIONS (3)
  - Diabetes mellitus [Recovered/Resolved]
  - Fluid retention [Recovered/Resolved]
  - Malaise [Recovered/Resolved]
